FAERS Safety Report 24124479 (Version 1)
Quarter: 2024Q3

REPORT INFORMATION
  Report Type: Report from Study
  Country: CN (occurrence: CN)
  Receive Date: 20240723
  Receipt Date: 20240723
  Transmission Date: 20241017
  Serious: Yes (Other)
  Sender: ROCHE
  Company Number: CN-BoehringerIngelheim-2024-BI-039397

PATIENT

DRUGS (2)
  1. ALTEPLASE [Suspect]
     Active Substance: ALTEPLASE
     Indication: Ischaemic stroke
     Dosage: 0.6 MG/KG; THE MAXIMUM DOSE IS 60 MG, 10% OF THE TOTAL DOSE WAS INTRAVENOUSLY INJECTED WITHIN 1 MIN,
     Route: 042
  2. ALTEPLASE [Suspect]
     Active Substance: ALTEPLASE
     Dosage: 0.6 MG/KG; THE MAXIMUM DOSE IS 60 MG; AND THE REMAINING 90% WAS CONTINUOUSLY INFUSED WITHIN 1H
     Route: 042

REACTIONS (2)
  - Drug ineffective [Unknown]
  - No adverse event [Unknown]
